FAERS Safety Report 6292592-5 (Version None)
Quarter: 2009Q3

REPORT INFORMATION
  Report Type: 
  Country: None (occurrence: None)
  Receive Date: 20090731
  Receipt Date: 20090722
  Transmission Date: 20100115
  Serious: Yes (Other)
  Sender: FDA-Public Use
  Company Number: GB-JNJFOC-20090707679

PATIENT
  Sex: Female
  Weight: 62 kg

DRUGS (12)
  1. REMICADE [Suspect]
     Route: 042
  2. REMICADE [Suspect]
     Indication: RHEUMATOID ARTHRITIS
     Route: 042
  3. LEFLUNOMIDE [Concomitant]
  4. AMITRIPTYLINE HCL [Concomitant]
  5. CLOPIDOGREL [Concomitant]
  6. ACETAMINOPHEN W/ CODEINE [Concomitant]
  7. ISOTARD XL [Concomitant]
  8. LATANOPROST [Concomitant]
  9. SENNA [Concomitant]
  10. LEFLUNOMIDE [Concomitant]
  11. SIMVASTATIN [Concomitant]
  12. OTHER OPHTHALMOLOGICALS [Concomitant]

REACTIONS (1)
  - LIP NEOPLASM MALIGNANT STAGE UNSPECIFIED [None]
